FAERS Safety Report 7326687-1 (Version None)
Quarter: 2011Q1

REPORT INFORMATION
  Report Type: 
  Country: None (occurrence: None)
  Receive Date: 20110302
  Receipt Date: 20110224
  Transmission Date: 20110831
  Serious: Yes (Hospitalization)
  Sender: FDA-Public Use
  Company Number: DK-PFIZER INC-2011041108

PATIENT
  Age: 55 Year
  Sex: Female

DRUGS (4)
  1. LYRICA [Suspect]
     Indication: SCHIZOPHRENIA, PARANOID TYPE
     Route: 048
     Dates: start: 20071201, end: 20080301
  2. TRILAFON [Concomitant]
  3. IMOZOP [Concomitant]
     Route: 048
  4. OXAZEPAM [Concomitant]

REACTIONS (3)
  - MENTAL IMPAIRMENT [None]
  - PARAESTHESIA [None]
  - TINNITUS [None]
